FAERS Safety Report 11077768 (Version 4)
Quarter: 2015Q2

REPORT INFORMATION
  Report Type: Spontaneous
  Country: BR (occurrence: BR)
  Receive Date: 20150430
  Receipt Date: 20150605
  Transmission Date: 20150821
  Serious: Yes (Hospitalization, Other)
  Sender: FDA-Public Use
  Company Number: BR-AMGEN-BRASP2015041007

PATIENT
  Age: 45 Year
  Sex: Female
  Weight: 57 kg

DRUGS (2)
  1. ENBREL [Suspect]
     Active Substance: ETANERCEPT
     Indication: ANKYLOSING SPONDYLITIS
     Dosage: 50 MG, ONCE WEEKLY
     Route: 065
     Dates: start: 2011, end: 201504
  2. ENBREL [Suspect]
     Active Substance: ETANERCEPT
     Dosage: 50 MG WEEKLY
     Route: 065
     Dates: start: 20150425

REACTIONS (5)
  - Mobility decreased [Not Recovered/Not Resolved]
  - Road traffic accident [Unknown]
  - Procedural pain [Unknown]
  - Lower limb fracture [Unknown]
  - Fracture pain [Recovered/Resolved]

NARRATIVE: CASE EVENT DATE: 2015
